FAERS Safety Report 10244553 (Version 1)
Quarter: 2014Q2

REPORT INFORMATION
  Report Type: Spontaneous
  Country: US (occurrence: None)
  Receive Date: 20140617
  Receipt Date: 20140617
  Transmission Date: 20141212
  Serious: No
  Sender: FDA-Public Use
  Company Number: 2014CT000013

PATIENT
  Age: 67 Year
  Sex: Male

DRUGS (3)
  1. KORLYM [Suspect]
     Indication: CUSHING^S SYNDROME
     Route: 048
     Dates: start: 20140123
  2. KORLYM [Suspect]
     Indication: PITUITARY-DEPENDENT CUSHING^S SYNDROME
     Route: 048
     Dates: start: 20140123
  3. TESTOSTERONE [Concomitant]

REACTIONS (4)
  - Fatigue [None]
  - Decreased appetite [None]
  - Insomnia [None]
  - Hot flush [None]
